FAERS Safety Report 6361745-X (Version None)
Quarter: 2009Q3

REPORT INFORMATION
  Report Type: 
  Country: None (occurrence: None)
  Receive Date: 20090918
  Receipt Date: 20090916
  Transmission Date: 20100115
  Serious: Yes (Life-Threatening, Hospitalization)
  Sender: FDA-Public Use
  Company Number: FR-BRISTOL-MYERS SQUIBB COMPANY-14782742

PATIENT
  Age: 75 Year
  Sex: Female

DRUGS (11)
  1. COUMADIN [Suspect]
     Indication: PULMONARY EMBOLISM
     Route: 048
     Dates: start: 20090601, end: 20090827
  2. LOVENOX [Suspect]
     Indication: PHLEBITIS
     Route: 058
     Dates: start: 20090826, end: 20090827
  3. CAPTOPRIL [Concomitant]
  4. LASIX [Concomitant]
  5. AMLODIPINE [Concomitant]
  6. DETENSIEL [Concomitant]
     Dosage: 1DF=10(UNIT NOT SPECIFIED)
  7. DIFFU-K [Concomitant]
  8. SIMVASTATIN [Concomitant]
  9. NOVOMIX [Concomitant]
     Dosage: NOVOMIX 30MG;MORNING AND EVENING
  10. INSULIN RAPID [Concomitant]
  11. IMOVANE [Concomitant]
     Dosage: 1DF=7.5(UNITS NOT SPECIFIED)

REACTIONS (4)
  - APHASIA [None]
  - CEREBRAL HAEMATOMA [None]
  - FALL [None]
  - HEMIPLEGIA [None]
